APPROVED DRUG PRODUCT: DEXTROAMP SACCHARATE, AMP ASPARTATE, DEXTROAMP SULFATE AND AMP SULFATE
Active Ingredient: AMPHETAMINE ASPARTATE; AMPHETAMINE SULFATE; DEXTROAMPHETAMINE SACCHARATE; DEXTROAMPHETAMINE SULFATE
Strength: 1.25MG;1.25MG;1.25MG;1.25MG
Dosage Form/Route: TABLET;ORAL
Application: A040444 | Product #001 | TE Code: AB
Applicant: EPIC PHARMA LLC
Approved: Jun 19, 2002 | RLD: No | RS: No | Type: RX